FAERS Safety Report 4618699-3 (Version None)
Quarter: 2005Q1

REPORT INFORMATION
  Report Type: 
  Country: None (occurrence: None)
  Receive Date: 20050324
  Receipt Date: 20050307
  Transmission Date: 20050727
  Serious: Yes (Hospitalization)
  Sender: FDA-Public Use
  Company Number: USA050291048

PATIENT
  Age: 82 Year
  Sex: Female

DRUGS (16)
  1. FORTEO [Suspect]
     Indication: OSTEOPOROSIS
     Dosage: 20 UG DAY
     Dates: start: 20030601, end: 20050202
  2. LOPRESSOR [Concomitant]
  3. CARDIZEM CD [Concomitant]
  4. MS CONTIN [Concomitant]
  5. PERCOCET [Concomitant]
  6. ZOLOFT [Concomitant]
  7. OSCAL (CALCIUM CARBONATE) [Concomitant]
  8. TYLENOL (CAPLET) [Concomitant]
  9. PREDNISONE [Concomitant]
  10. SENOKOT (SENNA ALEXANDRINA) [Concomitant]
  11. FOLATE SODIUM [Concomitant]
  12. MULTI-VITAMIN [Concomitant]
  13. PROTONIX [Concomitant]
  14. THIAMINE [Concomitant]
  15. PARAFFIN SOFT [Concomitant]
  16. TPN [Concomitant]

REACTIONS (12)
  - CARDIAC FAILURE CONGESTIVE [None]
  - CONDITION AGGRAVATED [None]
  - LUNG INFILTRATION [None]
  - METHICILLIN-RESISTANT STAPHYLOCOCCAL AUREUS TEST POSITIVE [None]
  - MYOPATHY STEROID [None]
  - PHARMACEUTICAL PRODUCT COMPLAINT [None]
  - PNEUMONIA [None]
  - PSEUDOMONAS INFECTION [None]
  - SMALL INTESTINAL OBSTRUCTION [None]
  - SMALL INTESTINAL PERFORATION [None]
  - SPUTUM CULTURE POSITIVE [None]
  - UPPER GASTROINTESTINAL HAEMORRHAGE [None]
